FAERS Safety Report 7207561-8 (Version None)
Quarter: 2010Q4

REPORT INFORMATION
  Report Type: 
  Country: None (occurrence: None)
  Receive Date: 20101221
  Receipt Date: 20101213
  Transmission Date: 20110411
  Serious: Yes (Death, Hospitalization)
  Sender: FDA-Public Use
  Company Number: US-JNJFOC-20101105557

PATIENT
  Age: 84 Year
  Sex: Female
  Weight: 39.9165 kg

DRUGS (1)
  1. DACOGEN [Suspect]
     Indication: MYELODYSPLASTIC SYNDROME
     Dosage: 50 MG, INTRAVENOUS
     Route: 042
     Dates: start: 20100913, end: 20100913

REACTIONS (4)
  - ACUTE MYELOID LEUKAEMIA [None]
  - HYPOXIA [None]
  - MALIGNANT NEOPLASM PROGRESSION [None]
  - PNEUMONIA [None]
